FAERS Safety Report 16706322 (Version 2)
Quarter: 2019Q3

REPORT INFORMATION
  Report Type: Spontaneous
  Country: US (occurrence: US)
  Receive Date: 20190815
  Receipt Date: 20190819
  Transmission Date: 20191004
  Serious: Yes (Other)
  Sender: FDA-Public Use
  Company Number: US-009507513-1908USA003805

PATIENT
  Sex: Female

DRUGS (1)
  1. NEXPLANON [Suspect]
     Active Substance: ETONOGESTREL
     Dosage: ONE ROD
     Route: 059

REACTIONS (4)
  - Device deployment issue [Recovered/Resolved]
  - Surgery [Unknown]
  - Device dislocation [Recovered/Resolved]
  - Complication of device removal [Recovered/Resolved]
